FAERS Safety Report 7945478-1 (Version None)
Quarter: 2011Q4

REPORT INFORMATION
  Report Type: 
  Country: None (occurrence: None)
  Receive Date: 20111121
  Receipt Date: 20111111
  Transmission Date: 20120403
  Serious: Yes (Hospitalization)
  Sender: FDA-Public Use
  Company Number: 2011SP053379

PATIENT
  Age: 57 Year
  Sex: Male
  Weight: 120.2032 kg

DRUGS (13)
  1. VICTRELIS [Suspect]
     Dosage: 200 MG;TID;PO
     Route: 048
  2. RIBAVIRIN [Suspect]
     Dosage: 1200 MG;  ;PO
     Route: 048
  3. SPIRONOLACT [Concomitant]
  4. LEVEMIR [Concomitant]
  5. XIFAXAN [Concomitant]
  6. METFORMIN HCL [Concomitant]
  7. LANSOPRAZOLE [Concomitant]
  8. PROPRANOLOL [Concomitant]
  9. PEGASYS [Suspect]
     Dosage: ;  ;SC
     Route: 058
  10. NOVOLOG [Concomitant]
  11. MULTIVITAMIN   /00097801/ [Concomitant]
  12. FUROSEMIDE [Concomitant]
  13. FLUOXETINE [Concomitant]

REACTIONS (5)
  - DYSGEUSIA [None]
  - NAUSEA [None]
  - INFLUENZA LIKE ILLNESS [None]
  - FATIGUE [None]
  - CHEST PAIN [None]
